FAERS Safety Report 6562053-4 (Version None)
Quarter: 2010Q1

REPORT INFORMATION
  Report Type: 
  Country: None (occurrence: None)
  Receive Date: 20100130
  Receipt Date: 20091226
  Transmission Date: 20100710
  Serious: No
  Sender: FDA-Public Use
  Company Number: US-ABBOTT-09P-163-0600618-00

PATIENT
  Sex: Female

DRUGS (1)
  1. HUMIRA [Suspect]
     Indication: DRUG USE FOR UNKNOWN INDICATION
     Route: 058
     Dates: start: 20090801

REACTIONS (6)
  - BACK PAIN [None]
  - CONTUSION [None]
  - FATIGUE [None]
  - NASAL CONGESTION [None]
  - NAUSEA [None]
  - RESPIRATORY TRACT CONGESTION [None]
